FAERS Safety Report 5255675-4 (Version None)
Quarter: 2007Q1

REPORT INFORMATION
  Report Type: 
  Country: None (occurrence: None)
  Receive Date: 20070305
  Receipt Date: 20070221
  Transmission Date: 20070707
  Serious: Yes (Hospitalization, Other)
  Sender: FDA-Public Use
  Company Number: US-PFIZER INC-2006132711

PATIENT
  Sex: Female

DRUGS (1)
  1. BEXTRA [Suspect]
     Indication: OSTEOARTHRITIS

REACTIONS (6)
  - BLISTER [None]
  - NAIL DISORDER [None]
  - ORAL SOFT TISSUE DISORDER [None]
  - PHARYNGEAL OEDEMA [None]
  - RASH [None]
  - SCAR [None]
